FAERS Safety Report 11647382 (Version 1)
Quarter: 2015Q4

REPORT INFORMATION
  Report Type: Spontaneous
  Country: US (occurrence: None)
  Receive Date: 20151019
  Receipt Date: 20151019
  Transmission Date: 20160304
  Serious: Yes (Other)
  Sender: FDA-Public Use
  Company Number: None

PATIENT
  Age: 64 Year
  Sex: Female
  Weight: 85.5 kg

DRUGS (1)
  1. LATUDA [Suspect]
     Active Substance: LURASIDONE HYDROCHLORIDE
     Indication: DYSTHYMIC DISORDER
     Dosage: QHS WITH FOOD
     Route: 048
     Dates: start: 20150924, end: 20151002

REACTIONS (3)
  - Dysphagia [None]
  - Choking [None]
  - Panic attack [None]

NARRATIVE: CASE EVENT DATE: 20151002
